FAERS Safety Report 9296066 (Version 2)
Quarter: 2013Q3

REPORT INFORMATION
  Report Type: Report from Study
  Country: JP (occurrence: JP)
  Receive Date: 20130517
  Receipt Date: 20130705
  Transmission Date: 20140515
  Serious: Yes (Life-Threatening, Hospitalization)
  Sender: FDA-Public Use
  Company Number: JP-009507513-1305JPN010590

PATIENT
  Age: 37 Year
  Sex: Male

DRUGS (9)
  1. REMERON [Suspect]
     Indication: DEPRESSION
     Dosage: 1 DF, QD
     Route: 048
     Dates: start: 20120910, end: 20121009
  2. REMERON [Suspect]
     Dosage: 2 DF, QD
     Route: 048
     Dates: start: 20121010
  3. MYSLEE [Concomitant]
     Indication: DEPRESSION
     Dosage: 10 MG, QD
     Route: 048
     Dates: start: 201209
  4. MYSLEE [Concomitant]
     Indication: INSOMNIA
  5. DEPAS [Concomitant]
     Indication: DEPRESSION
     Dosage: 0.5 MG, SINGLE USE 2-3 TIMES A DAY
     Route: 048
     Dates: start: 201209, end: 20120923
  6. DEPAS [Concomitant]
     Dosage: 1 MG, BID, FORMULATION: POR
     Route: 048
     Dates: start: 20120924
  7. MEILAX [Concomitant]
     Indication: ANXIETY
     Dosage: 2 MG, QD
     Route: 048
     Dates: start: 20120924
  8. MEILAX [Concomitant]
     Indication: DEPRESSION
  9. MEILAX [Concomitant]
     Indication: TENSION

REACTIONS (1)
  - Suicide attempt [Recovered/Resolved]
